FAERS Safety Report 9659612 (Version 2)
Quarter: 2013Q4

REPORT INFORMATION
  Report Type: Spontaneous
  Country: US (occurrence: US)
  Receive Date: 20131031
  Receipt Date: 20131217
  Transmission Date: 20140711
  Serious: Yes (Other)
  Sender: FDA-Public Use
  Company Number: US-PERRIGO-13US010872

PATIENT
  Age: 1 Year
  Sex: Female
  Weight: 6.8 kg

DRUGS (1)
  1. ACETAMINOPHEN CHILD CHERRY 32 MG/ML 175 [Suspect]
     Indication: ACCIDENTAL EXPOSURE TO PRODUCT BY CHILD
     Dosage: APPROXIMATELY 2 OZ
     Route: 048
     Dates: start: 20131021, end: 20131021

REACTIONS (2)
  - Accidental overdose [Recovered/Resolved]
  - Somnolence [Recovered/Resolved]
